FAERS Safety Report 7553497-2 (Version None)
Quarter: 2011Q2

REPORT INFORMATION
  Report Type: 
  Country: None (occurrence: None)
  Receive Date: 20110617
  Receipt Date: 20110131
  Transmission Date: 20111010
  Serious: Yes (Hospitalization, Other)
  Sender: FDA-Public Use
  Company Number: US-BAYER-201026313NA

PATIENT
  Age: 51 Year
  Sex: Female
  Weight: 130.61 kg

DRUGS (17)
  1. TRASYLOL [Suspect]
     Dosage: UNK
  2. CLONIDINE [Concomitant]
     Dosage: 0.2 MG, BID
     Route: 048
     Dates: start: 20051109
  3. PROTAMINE SULFATE [Concomitant]
     Dosage: 450
     Dates: start: 20051209, end: 20051209
  4. NORVASC [Concomitant]
     Dosage: 10
     Route: 048
     Dates: start: 20000106
  5. ZOCOR [Concomitant]
     Dosage: 40 MG, UNK
     Route: 048
     Dates: start: 20051109
  6. NEURONTIN [Concomitant]
     Dosage: 300 MG, BID
     Route: 048
  7. PANCURONIUM BROMIDE [Concomitant]
     Dosage: 15 MG, UNK
     Route: 042
     Dates: start: 20051209, end: 20051209
  8. MIDAZOLAM HCL [Concomitant]
     Dosage: IV DRIP
     Route: 042
     Dates: start: 20051209, end: 20051209
  9. COZAAR [Concomitant]
     Dosage: 100 MG, BID
     Route: 048
     Dates: start: 20051026
  10. INSULIN [Concomitant]
     Dosage: 5 UNITS / HR
     Route: 042
     Dates: start: 20051209
  11. CARDIOPLEGIA [Concomitant]
     Dosage: UNK
     Dates: start: 20051209, end: 20051209
  12. LASIX [Concomitant]
     Dosage: 40 MG, UNK
     Route: 048
     Dates: start: 20050518
  13. TRASYLOL [Suspect]
     Indication: CORONARY ARTERY BYPASS
     Dosage: 1 ML TEST DOSE, 200CC BOLUS, 50 CC/HR CONTINUOUS INFUSION
     Route: 042
     Dates: start: 20051209, end: 20051209
  14. ACETYLSALICYLIC ACID SRT [Concomitant]
     Dosage: 81
     Route: 048
     Dates: start: 20051109
  15. ZAROXOLYN [Concomitant]
     Dosage: 5 MG, UNK
     Route: 048
  16. HEPARIN [Concomitant]
     Dosage: 750 U, UNK
     Dates: start: 20051209
  17. COREG [Concomitant]
     Dosage: 25 MG, UNK
     Route: 048
     Dates: start: 20051109

REACTIONS (9)
  - RENAL FAILURE [None]
  - STRESS [None]
  - EMOTIONAL DISTRESS [None]
  - FEAR [None]
  - ANXIETY [None]
  - RENAL INJURY [None]
  - RENAL IMPAIRMENT [None]
  - PAIN [None]
  - EMOTIONAL DISORDER [None]
